FAERS Safety Report 23596473 (Version 1)
Quarter: 2024Q1

REPORT INFORMATION
  Report Type: Spontaneous
  Country: US (occurrence: None)
  Receive Date: 20240304
  Receipt Date: 20240304
  Transmission Date: 20240410
  Serious: No
  Sender: FDA-Public Use
  Company Number: None

PATIENT
  Age: 78 Year

DRUGS (27)
  1. TEMOZOLOMIDE [Suspect]
     Active Substance: TEMOZOLOMIDE
     Indication: Brain neoplasm malignant
     Dosage: OTHER FREQUENCY : OTHER;?
     Route: 048
     Dates: start: 20231106, end: 20240304
  2. ACCU-CHEK GUIDE ME KIT [Concomitant]
  3. ACCU-CHEK GUIDE TEST STRIPS 100S [Concomitant]
  4. AMDODIPINE BESYLATE [Concomitant]
  5. AMOXICILLIN [Concomitant]
     Active Substance: AMOXICILLIN
  6. AZITHROMYCIN [Concomitant]
     Active Substance: AZITHROMYCIN
  7. BACLOFEN [Concomitant]
     Active Substance: BACLOFEN
  8. COVID 19 MODERNA VIVALENT 12+ [Concomitant]
  9. CYCLOBENZAPRINE [Concomitant]
     Active Substance: CYCLOBENZAPRINE
  10. DEXAMETHASONE [Concomitant]
     Active Substance: DEXAMETHASONE
  11. FLUZONE HD 65+ PF 2022-23 [Concomitant]
  12. GENTLE LAXATIVE [Concomitant]
  13. HALOPERIDOL [Concomitant]
  14. IBUPROFEN [Concomitant]
     Active Substance: IBUPROFEN
  15. LEVETIRACETAM [Concomitant]
     Active Substance: LEVETIRACETAM
  16. LORAZEPAM [Concomitant]
     Active Substance: LORAZEPAM
  17. MELOXICAM [Concomitant]
     Active Substance: MELOXICAM
  18. METFORMIN [Concomitant]
     Active Substance: METFORMIN HYDROCHLORIDE
  19. MORPHINE SULFATE [Concomitant]
     Active Substance: MORPHINE SULFATE
  20. ONDANSETRON [Concomitant]
     Active Substance: ONDANSETRON
  21. PROCHLORPERAZINE [Concomitant]
     Active Substance: PROCHLORPERAZINE
  22. SENNA [Concomitant]
     Active Substance: SENNA LEAF\SENNOSIDES\SENNOSIDES A AND B
  23. SOFTCLIX LANCETS [Concomitant]
  24. SULFAMETHOXAZOLE\TRIMETHOPRIM [Concomitant]
     Active Substance: SULFAMETHOXAZOLE\TRIMETHOPRIM
  25. BYSTOLIC [Concomitant]
     Active Substance: NEBIVOLOL HYDROCHLORIDE
  26. OMEPRAZOLE [Concomitant]
     Active Substance: OMEPRAZOLE
  27. ROSUVASTATIN [Concomitant]
     Active Substance: ROSUVASTATIN

REACTIONS (1)
  - Hospice care [None]

NARRATIVE: CASE EVENT DATE: 20240301
